FAERS Safety Report 18875517 (Version 5)
Quarter: 2021Q1

REPORT INFORMATION
  Report Type: Spontaneous
  Country: US (occurrence: US)
  Receive Date: 20210210
  Receipt Date: 20210305
  Transmission Date: 20210420
  Serious: Yes (Death, Life-Threatening, Other)
  Sender: FDA-Public Use
  Company Number: NVSC2021US029161

PATIENT
  Age: 71 Year
  Sex: Male
  Weight: 74 kg

DRUGS (1)
  1. KYMRIAH [Suspect]
     Active Substance: TISAGENLECLEUCEL
     Indication: DIFFUSE LARGE B-CELL LYMPHOMA
     Dosage: 3.0E8 CAR+ ONCE/SINGLE
     Route: 042
     Dates: start: 20210120, end: 20210120

REACTIONS (16)
  - Unresponsive to stimuli [Unknown]
  - Agitation [Unknown]
  - Disseminated intravascular coagulation [Unknown]
  - Encephalopathy [Unknown]
  - Diffuse large B-cell lymphoma [Fatal]
  - Multiple organ dysfunction syndrome [Fatal]
  - Malignant neoplasm progression [Fatal]
  - Hepatocellular injury [Unknown]
  - Eye movement disorder [Unknown]
  - Acute kidney injury [Unknown]
  - Pyrexia [Unknown]
  - Cytokine release syndrome [Unknown]
  - Neurotoxicity [Fatal]
  - Acute myocardial infarction [Unknown]
  - Blood lactate dehydrogenase increased [Fatal]
  - Miosis [Unknown]

NARRATIVE: CASE EVENT DATE: 20210204
